FAERS Safety Report 17106083 (Version 2)
Quarter: 2019Q4

REPORT INFORMATION
  Report Type: Spontaneous
  Country: CN (occurrence: CN)
  Receive Date: 20191203
  Receipt Date: 20191206
  Transmission Date: 20200122
  Serious: Yes (Death, Hospitalization, Other)
  Sender: FDA-Public Use
  Company Number: CN-ALEMBIC PHARMACUETICALS LIMITED-2019SCAL000968

PATIENT

DRUGS (8)
  1. VALSARTAN. [Concomitant]
     Active Substance: VALSARTAN
     Indication: HYPERTENSION
     Dosage: 80 MILLIGRAM, BID
  2. ACYCLOVIR. [Suspect]
     Active Substance: ACYCLOVIR
     Indication: HERPES ZOSTER
     Dosage: 0.5 GRAM, QD (FOR 3 DAYS)
     Route: 042
  3. VALACICLOVIR [Suspect]
     Active Substance: VALACYCLOVIR HYDROCHLORIDE
     Indication: HERPES ZOSTER
     Dosage: 0.3 MILLIGRAM, BID
  4. DEXAMETHASONE. [Concomitant]
     Active Substance: DEXAMETHASONE
     Indication: PAIN
  5. ACYCLOVIR. [Suspect]
     Active Substance: ACYCLOVIR
     Indication: PAIN
  6. NIFEDIPINE. [Concomitant]
     Active Substance: NIFEDIPINE
     Indication: HYPERTENSION
     Dosage: 30 MILLIGRAM, BID
  7. PERINDOPRIL [Concomitant]
     Active Substance: PERINDOPRIL
     Indication: HYPERTENSION
     Dosage: 8 MILLIGRAM, QD
  8. DEXAMETHASONE. [Concomitant]
     Active Substance: DEXAMETHASONE
     Indication: HERPES ZOSTER
     Dosage: 5 MILLIGRAM, QD (FOR 3 DAYS)
     Route: 042

REACTIONS (19)
  - Hallucination, visual [Fatal]
  - Altered state of consciousness [Fatal]
  - Tremor [Fatal]
  - Somnolence [Fatal]
  - Anuria [Unknown]
  - Coma [Fatal]
  - Respiratory failure [Unknown]
  - Blood pressure increased [Recovering/Resolving]
  - Irritability [Fatal]
  - Condition aggravated [Unknown]
  - Depressed level of consciousness [Fatal]
  - Gait disturbance [Fatal]
  - Lethargy [Fatal]
  - Product administration error [Unknown]
  - Heart rate increased [Unknown]
  - Delirium [Fatal]
  - Overdose [Unknown]
  - Mental disorder [Fatal]
  - Neurotoxicity [Fatal]
